FAERS Safety Report 18569195 (Version 5)
Quarter: 2021Q3

REPORT INFORMATION
  Report Type: Spontaneous
  Country: JP (occurrence: JP)
  Receive Date: 20201202
  Receipt Date: 20210721
  Transmission Date: 20211014
  Serious: Yes (Hospitalization, Other)
  Sender: FDA-Public Use
  Company Number: JP-009507513-2011JPN016351

PATIENT
  Age: 75 Year
  Sex: Male

DRUGS (4)
  1. OPDIVO [Suspect]
     Active Substance: NIVOLUMAB
     Indication: METASTATIC RENAL CELL CARCINOMA
     Dosage: 240 MG, Q3W
     Route: 041
     Dates: start: 20190917, end: 20191119
  2. OPDIVO [Suspect]
     Active Substance: NIVOLUMAB
     Dosage: 240 MILLIGRAM Q2W
     Route: 041
     Dates: end: 20200121
  3. YERVOY [Suspect]
     Active Substance: IPILIMUMAB
     Indication: METASTATIC RENAL CELL CARCINOMA
     Dosage: 60 MG, Q3W
     Route: 041
     Dates: start: 20190917, end: 20191119
  4. GLACTIV [Suspect]
     Active Substance: SITAGLIPTIN
     Indication: BLOOD GLUCOSE INCREASED
     Dosage: 50 MG, EVERYDAY
     Route: 048

REACTIONS (4)
  - Autoimmune pancreatitis [Recovering/Resolving]
  - Autoimmune pancreatitis [Recovered/Resolved]
  - Autoimmune colitis [Recovering/Resolving]
  - Blood glucose increased [Unknown]

NARRATIVE: CASE EVENT DATE: 20200123
